FAERS Safety Report 11020788 (Version 1)
Quarter: 2015Q2

REPORT INFORMATION
  Report Type: Report from Study
  Country: US (occurrence: US)
  Receive Date: 20150413
  Receipt Date: 20150413
  Transmission Date: 20150821
  Serious: Yes (Other)
  Sender: FDA-Public Use
  Company Number: US-BIOGENIDEC-2015BI045849

PATIENT
  Age: 34 Year
  Sex: Female

DRUGS (2)
  1. TECFIDERA [Suspect]
     Active Substance: DIMETHYL FUMARATE
     Indication: MULTIPLE SCLEROSIS
     Route: 048
     Dates: start: 201503
  2. TECFIDERA [Suspect]
     Active Substance: DIMETHYL FUMARATE
     Indication: MULTIPLE SCLEROSIS
     Route: 048
     Dates: start: 201502, end: 201503

REACTIONS (7)
  - Hypoaesthesia [Unknown]
  - Flushing [Not Recovered/Not Resolved]
  - Back pain [Unknown]
  - Drug dose omission [Recovered/Resolved]
  - Dysarthria [Not Recovered/Not Resolved]
  - Blindness unilateral [Unknown]
  - Paraesthesia [Unknown]

NARRATIVE: CASE EVENT DATE: 201503
